FAERS Safety Report 15265315 (Version 1)
Quarter: 2018Q3

REPORT INFORMATION
  Report Type: Report from Study
  Country: FR (occurrence: FR)
  Receive Date: 20180810
  Receipt Date: 20180810
  Transmission Date: 20181010
  Serious: Yes (Other)
  Sender: FDA-Public Use
  Company Number: FR-TEVA-2018-FR-937412

PATIENT
  Age: 64 Year
  Sex: Male
  Weight: 65 kg

DRUGS (11)
  1. TACROLIMUS. [Suspect]
     Active Substance: TACROLIMUS
     Dosage: 11 MILLIGRAM DAILY;
     Route: 065
     Dates: start: 20170407
  2. TACROLIMUS. [Suspect]
     Active Substance: TACROLIMUS
     Dosage: 10 MILLIGRAM DAILY;
     Route: 065
     Dates: start: 20170320
  3. TACROLIMUS. [Suspect]
     Active Substance: TACROLIMUS
     Indication: RENAL TRANSPLANT
     Dosage: 11 MILLIGRAM DAILY;
     Route: 065
     Dates: start: 20170718
  4. TACROLIMUS. [Suspect]
     Active Substance: TACROLIMUS
     Dosage: 10.5 MILLIGRAM DAILY;
     Route: 065
     Dates: start: 20171007
  5. TACROLIMUS. [Suspect]
     Active Substance: TACROLIMUS
     Dosage: 11.5 MILLIGRAM DAILY;
     Route: 065
     Dates: start: 20170602
  6. TACROLIMUS. [Suspect]
     Active Substance: TACROLIMUS
     Dates: start: 20170310
  7. CELLCEPT [Concomitant]
     Active Substance: MYCOPHENOLATE MOFETIL\MYCOPHENOLATE MOFETIL HYDROCHLORIDE
     Dosage: 1000 UNK,
     Route: 065
     Dates: start: 20170329
  8. CELLCEPT [Concomitant]
     Active Substance: MYCOPHENOLATE MOFETIL\MYCOPHENOLATE MOFETIL HYDROCHLORIDE
     Indication: IMMUNOSUPPRESSION
     Dosage: 1500 UNK,
     Route: 065
     Dates: start: 20161212, end: 20170328
  9. TACROLIMUS. [Suspect]
     Active Substance: TACROLIMUS
     Dosage: 11 MILLIGRAM DAILY;
     Route: 065
     Dates: start: 20170519
  10. CORTANCYL [Concomitant]
     Active Substance: PREDNISONE
     Indication: IMMUNOSUPPRESSION
     Dosage: 5 UNK
     Route: 065
     Dates: start: 20170202
  11. TACROLIMUS. [Suspect]
     Active Substance: TACROLIMUS
     Dosage: 11.5 MILLIGRAM DAILY;
     Route: 065
     Dates: start: 20170513

REACTIONS (1)
  - Pyelonephritis [Recovered/Resolved]

NARRATIVE: CASE EVENT DATE: 20170418
